FAERS Safety Report 4296286-7 (Version None)
Quarter: 2004Q1

REPORT INFORMATION
  Report Type: 
  Country: None (occurrence: None)
  Receive Date: 20040212
  Receipt Date: 20040203
  Transmission Date: 20041129
  Serious: Yes (Hospitalization)
  Sender: FDA-Public Use
  Company Number: HQWYE793203FEB04

PATIENT
  Age: 68 Year
  Sex: Male

DRUGS (10)
  1. TAZOCIN (PIPERACILLIN/ TAZOBACTAM, INJECTION) [Suspect]
     Indication: CYSTITIS
     Dosage: 2.5 GRAMS DAILY
     Route: 041
     Dates: start: 20031128, end: 20031202
  2. VEEN D (CALCIUM CHLORIDE DIHYDRATE/GLUCOSE/POTASSIUM CHLORIDE/SODIUM A [Concomitant]
  3. INSULIN [Concomitant]
  4. ADALAT [Concomitant]
  5. ISOSORBIDE DINITRATE [Concomitant]
  6. FAMOTIDINE [Concomitant]
  7. LANIRAPID (METILDIGOXIN) [Concomitant]
  8. LASIX [Concomitant]
  9. INDERAL [Concomitant]
  10. MITOMYCIN [Concomitant]

REACTIONS (1)
  - WOUND DECOMPOSITION [None]
